FAERS Safety Report 7788565-3 (Version None)
Quarter: 2011Q3

REPORT INFORMATION
  Report Type: 
  Country: None (occurrence: None)
  Receive Date: 20110930
  Receipt Date: 20110920
  Transmission Date: 20111222
  Serious: Yes (Other)
  Sender: FDA-Public Use
  Company Number: JP-PFIZER INC-2011217734

PATIENT
  Age: 59 Year
  Sex: Male

DRUGS (5)
  1. RITUXIMAB [Concomitant]
     Dosage: 600 MG, UNK
     Route: 041
  2. DOXORUBICIN HYDROCHLORIDE [Suspect]
     Indication: DIFFUSE LARGE B-CELL LYMPHOMA
     Dosage: 85 MG, UNK
     Route: 041
  3. VINCRISTINE SULFATE [Concomitant]
     Dosage: 2 MG, UNK
  4. CYCLOPHOSPHAMIDE [Concomitant]
     Dosage: 1260 MG, UNK
     Route: 041
  5. PREDNISOLONE [Concomitant]
     Dosage: 100 MG, UNK
     Route: 048

REACTIONS (2)
  - BLOOD ALBUMIN DECREASED [None]
  - PYLORIC STENOSIS [None]
